FAERS Safety Report 8009903-2 (Version None)
Quarter: 2011Q4

REPORT INFORMATION
  Report Type: 
  Country: None (occurrence: None)
  Receive Date: 20111228
  Receipt Date: 20111219
  Transmission Date: 20120403
  Serious: Yes (Life-Threatening, Other)
  Sender: FDA-Public Use
  Company Number: US-JNJFOC-20111000552

PATIENT
  Sex: Female
  Weight: 53.98 kg

DRUGS (8)
  1. ARAVA [Concomitant]
     Indication: RHEUMATOID ARTHRITIS
     Route: 065
  2. LORTAB [Concomitant]
     Indication: PAIN
     Dosage: 10 MG ONCE A DAY/ 50 MG TWICE A DAY
     Route: 065
  3. NAPROXEN (ALEVE) [Concomitant]
     Indication: ARTHRITIS
     Dosage: FOR YEARS
     Route: 065
  4. REMICADE [Suspect]
     Indication: RHEUMATOID ARTHRITIS
     Route: 042
     Dates: start: 20110913, end: 20110927
  5. PROTONIX [Concomitant]
     Indication: GASTROOESOPHAGEAL REFLUX DISEASE
     Route: 065
  6. RECLAST [Concomitant]
     Indication: OSTEOPOROSIS
     Route: 065
     Dates: start: 20100101
  7. REMICADE [Suspect]
     Dosage: SEVERAL YEARS AGO, RECEIVED FOR 3 YEARS
     Route: 042
  8. LOSARTAN POTASSIUM [Concomitant]
     Indication: HYPERTENSION
     Route: 065

REACTIONS (7)
  - SYSTEMIC LUPUS ERYTHEMATOSUS [None]
  - INFUSION RELATED REACTION [None]
  - DRUG EFFECT DECREASED [None]
  - DYSPNOEA [None]
  - HYPOKINESIA [None]
  - MULTI-ORGAN FAILURE [None]
  - ANAPHYLACTIC REACTION [None]
